FAERS Safety Report 7737815-8 (Version None)
Quarter: 2011Q3

REPORT INFORMATION
  Report Type: 
  Country: None (occurrence: None)
  Receive Date: 20110908
  Receipt Date: 20110829
  Transmission Date: 20111222
  Serious: Yes (Other)
  Sender: FDA-Public Use
  Company Number: PHHY2011JP43139

PATIENT
  Age: 13 Year
  Sex: Male

DRUGS (3)
  1. ALFACALCIDOL [Concomitant]
     Route: 048
  2. NEORAL [Suspect]
     Indication: GLOMERULONEPHRITIS MINIMAL LESION
     Route: 048
  3. ADRENAL HORMONE PREPARATIONS [Concomitant]
     Indication: GLOMERULONEPHRITIS MINIMAL LESION

REACTIONS (2)
  - OSTEONECROSIS [None]
  - SPINAL COMPRESSION FRACTURE [None]
